FAERS Safety Report 8048891-X (Version None)
Quarter: 2012Q1

REPORT INFORMATION
  Report Type: 
  Country: None (occurrence: None)
  Receive Date: 20120117
  Receipt Date: 20120104
  Transmission Date: 20120608
  Serious: Yes (Hospitalization, Other)
  Sender: FDA-Public Use
  Company Number: US-ELI_LILLY_AND_COMPANY-US201108000754

PATIENT
  Sex: Male

DRUGS (3)
  1. FORTEO [Suspect]
     Indication: OSTEOPOROSIS
     Dosage: 20 UG, QD
     Dates: end: 20071107
  2. FORTEO [Suspect]
     Dosage: 20 UG, QD
     Route: 065
  3. FORTEO [Suspect]
     Dosage: 20 UG, QD
     Route: 065
     Dates: start: 20110501

REACTIONS (9)
  - CORNEAL DYSTROPHY [None]
  - DIARRHOEA [None]
  - ASTHENIA [None]
  - BACK PAIN [None]
  - DIPLOPIA [None]
  - ABDOMINAL DISCOMFORT [None]
  - CLOSTRIDIAL INFECTION [None]
  - FATIGUE [None]
  - CHOLECYSTECTOMY [None]
